FAERS Safety Report 13550653 (Version 1)
Quarter: 2017Q2

REPORT INFORMATION
  Report Type: Spontaneous
  Country: US (occurrence: US)
  Receive Date: 20170516
  Receipt Date: 20170516
  Transmission Date: 20170830
  Serious: Yes (Death, Life-Threatening, Hospitalization, Other)
  Sender: FDA-Public Use
  Company Number: None

PATIENT
  Age: 90 Year
  Sex: Male
  Weight: 63.56 kg

DRUGS (8)
  1. GLYBURIDE. [Concomitant]
     Active Substance: GLYBURIDE
  2. ELIQUIS [Concomitant]
     Active Substance: APIXABAN
  3. THERACRAN HP [Concomitant]
  4. FAMOTIDINE. [Concomitant]
     Active Substance: FAMOTIDINE
  5. HYOSCYAMINE SULFATE 0.125MG TABLETS [Suspect]
     Active Substance: HYOSCYAMINE SULFATE
     Indication: ABDOMINAL PAIN
     Route: 048
     Dates: start: 20170211, end: 20170214
  6. SPIRONALACTONE [Concomitant]
     Active Substance: SPIRONOLACTONE
  7. ZYRTEC [Concomitant]
     Active Substance: CETIRIZINE HYDROCHLORIDE
  8. TYLENOL [Suspect]
     Active Substance: ACETAMINOPHEN

REACTIONS (2)
  - Megacolon [None]
  - Acute kidney injury [None]

NARRATIVE: CASE EVENT DATE: 20170217
